FAERS Safety Report 25623595 (Version 1)
Quarter: 2025Q3

REPORT INFORMATION
  Report Type: Spontaneous
  Country: US (occurrence: None)
  Receive Date: 20250730
  Receipt Date: 20250730
  Transmission Date: 20251021
  Serious: Yes (Other)
  Sender: FDA-CTU
  Company Number: None

PATIENT
  Sex: Female

DRUGS (7)
  1. RINVOQ [Suspect]
     Active Substance: UPADACITINIB
     Indication: Arthritis
     Dosage: TAKE 1 TABLET BY MOUTH DAILY WITH A MEAL??
     Route: 048
     Dates: start: 20250116
  2. COENZYME Q10 [Concomitant]
     Active Substance: DIETARY SUPPLEMENT\UBIDECARENONE
  3. FOLIC ACID [Concomitant]
     Active Substance: FOLIC ACID
  4. IRON [Concomitant]
     Active Substance: IRON
  5. DIETARY SUPPLEMENT\HERBALS\MILK THISTLE [Concomitant]
     Active Substance: MILK THISTLE
  6. VITAMIN B12 [Concomitant]
     Active Substance: CYANOCOBALAMIN
  7. VITAMIN B6 [Concomitant]
     Active Substance: PYRIDOXINE HYDROCHLORIDE

REACTIONS (7)
  - Drug ineffective [None]
  - Loss of personal independence in daily activities [None]
  - Pain [None]
  - Intentional dose omission [None]
  - Infection [None]
  - Illness [None]
  - Surgery [None]
